FAERS Safety Report 12177018 (Version 2)
Quarter: 2016Q2

REPORT INFORMATION
  Report Type: Report from Study
  Country: BR (occurrence: BR)
  Receive Date: 20160314
  Receipt Date: 20160408
  Transmission Date: 20160815
  Serious: Yes (Hospitalization, Other)
  Sender: FDA-Public Use
  Company Number: PHHY2016BR032954

PATIENT
  Age: 49 Year
  Sex: Female
  Weight: 55 kg

DRUGS (3)
  1. ACLASTA [Suspect]
     Active Substance: ZOLEDRONIC ACID
     Indication: OSTEOPENIA
     Dosage: UNK
     Route: 065
     Dates: start: 201601
  2. ACLASTA [Suspect]
     Active Substance: ZOLEDRONIC ACID
     Indication: BENIGN BONE NEOPLASM
  3. ACLASTA [Suspect]
     Active Substance: ZOLEDRONIC ACID
     Indication: OSTEOPOROSIS
     Dosage: 5 MG, UNK
     Route: 042
     Dates: start: 20150508

REACTIONS (7)
  - Body height decreased [Unknown]
  - Post procedural infection [Recovered/Resolved]
  - Pseudarthrosis [Recovering/Resolving]
  - Localised infection [Recovering/Resolving]
  - Pain in extremity [Recovering/Resolving]
  - Bone giant cell tumour [Recovering/Resolving]
  - Impaired healing [Unknown]

NARRATIVE: CASE EVENT DATE: 201511
